FAERS Safety Report 23063859 (Version 1)
Quarter: 2023Q4

REPORT INFORMATION
  Report Type: Spontaneous
  Country: US (occurrence: US)
  Receive Date: 20231013
  Receipt Date: 20231013
  Transmission Date: 20240110
  Serious: Yes (Other)
  Sender: FDA-Public Use
  Company Number: US-MYLANLABS-2023M1106882

PATIENT
  Age: 18 Year
  Sex: Male

DRUGS (1)
  1. TACROLIMUS [Suspect]
     Active Substance: TACROLIMUS
     Indication: Vitiligo
     Dosage: UNK, FROM UNSPECIFIED PERIOD OF TIME
     Route: 061

REACTIONS (2)
  - Photosensitivity reaction [Recovering/Resolving]
  - Off label use [Unknown]
